FAERS Safety Report 15107740 (Version 4)
Quarter: 2019Q2

REPORT INFORMATION
  Report Type: Report from Study
  Country: US (occurrence: US)
  Receive Date: 20180704
  Receipt Date: 20190603
  Transmission Date: 20190711
  Serious: Yes (Death, Hospitalization, Other)
  Sender: FDA-Public Use
  Company Number: US-BRISTOL-MYERS SQUIBB COMPANY-BMS-2018-051242

PATIENT
  Age: 53 Year
  Sex: Male
  Weight: 101.3 kg

DRUGS (2)
  1. BRENTUXIMAB [Suspect]
     Active Substance: BRENTUXIMAB VEDOTIN
     Indication: HODGKIN^S DISEASE
     Dosage: UNK
     Route: 065
     Dates: start: 20180215
  2. NIVOLUMAB [Suspect]
     Active Substance: NIVOLUMAB
     Indication: HODGKIN^S DISEASE
     Dosage: UNK
     Route: 065
     Dates: start: 20180606, end: 20180725

REACTIONS (7)
  - Meningitis viral [Unknown]
  - Diarrhoea [Unknown]
  - Metabolic encephalopathy [Recovered/Resolved with Sequelae]
  - Systemic inflammatory response syndrome [Unknown]
  - Malignant neoplasm progression [Fatal]
  - Hypernatraemia [Unknown]
  - Pyrexia [Unknown]

NARRATIVE: CASE EVENT DATE: 201804
